FAERS Safety Report 18033753 (Version 1)
Quarter: 2020Q3

REPORT INFORMATION
  Report Type: Other
  Country: FR (occurrence: FR)
  Receive Date: 20200717
  Receipt Date: 20200717
  Transmission Date: 20201103
  Serious: Yes (Other)
  Sender: FDA-Public Use
  Company Number: FR-DENTSPLY-2020SCDP000223

PATIENT
  Age: 31 Year
  Sex: Male
  Weight: 70 kg

DRUGS (1)
  1. XYLOCAINE WITH ADRENALINE (EPINEPHRINE) [Suspect]
     Active Substance: EPINEPHRINE BITARTRATE\LIDOCAINE HYDROCHLORIDE
     Indication: LOCAL ANAESTHESIA
     Dosage: 20 MILLILITER, TOTAL
     Route: 048
     Dates: start: 20191106, end: 20191106

REACTIONS (4)
  - Accidental overdose [Recovered/Resolved]
  - Hypertension [Recovered/Resolved]
  - Urticaria [Recovered/Resolved]
  - Incorrect route of product administration [Recovered/Resolved]

NARRATIVE: CASE EVENT DATE: 20191106
